FAERS Safety Report 6988064-2 (Version None)
Quarter: 2010Q3

REPORT INFORMATION
  Report Type: 
  Country: None (occurrence: None)
  Receive Date: 20100916
  Receipt Date: 20100914
  Transmission Date: 20110219
  Serious: Yes (Hospitalization)
  Sender: FDA-Public Use
  Company Number: A0881095A

PATIENT
  Age: 57 Year
  Sex: Male

DRUGS (8)
  1. ADVAIR DISKUS 100/50 [Suspect]
     Indication: EMPHYSEMA
     Dosage: 1PUFF TWICE PER DAY
     Route: 055
     Dates: start: 20090901
  2. ZYPREXA [Concomitant]
  3. KLONOPIN [Concomitant]
  4. SPIRIVA [Concomitant]
  5. SINGULAIR [Concomitant]
  6. EFFEXOR [Concomitant]
  7. THEOPHYLLINE [Concomitant]
  8. PREDNISONE [Concomitant]

REACTIONS (3)
  - EMPHYSEMA [None]
  - LARYNGITIS [None]
  - PNEUMONIA [None]
